FAERS Safety Report 19030112 (Version 1)
Quarter: 2021Q1

REPORT INFORMATION
  Report Type: Spontaneous
  Country: GB (occurrence: GB)
  Receive Date: 20210319
  Receipt Date: 20210319
  Transmission Date: 20210420
  Serious: Yes (Other)
  Sender: FDA-Public Use
  Company Number: GB-SA-2021SA091299

PATIENT
  Sex: Female

DRUGS (3)
  1. RIFADIN [Suspect]
     Active Substance: RIFAMPIN
     Dosage: 2 DF, QD
  2. ETHAMBUTOL [Concomitant]
     Active Substance: ETHAMBUTOL HYDROCHLORIDE
     Dosage: 2 1/2 PER DAY
  3. CLARITHROMYCIN TEVA [Concomitant]
     Active Substance: CLARITHROMYCIN
     Dosage: UNK UNK, BID

REACTIONS (1)
  - Mycobacterium avium complex infection [Unknown]
